FAERS Safety Report 10230342 (Version 2)
Quarter: 2014Q3

REPORT INFORMATION
  Report Type: Spontaneous
  Country: US (occurrence: US)
  Receive Date: 20140611
  Receipt Date: 20140826
  Transmission Date: 20150326
  Serious: Yes (Life-Threatening, Hospitalization, Other)
  Sender: FDA-Public Use
  Company Number: US-ELI_LILLY_AND_COMPANY-US201406001174

PATIENT
  Sex: Female
  Weight: 70.3 kg

DRUGS (1)
  1. ZYPREXA RELPREVV [Suspect]
     Active Substance: OLANZAPINE PAMOATE
     Indication: SCHIZOPHRENIA
     Dosage: 405MG, ONCE A MONTH
     Route: 030
     Dates: start: 201203

REACTIONS (3)
  - Haemorrhagic stroke [Not Recovered/Not Resolved]
  - Off label use [Unknown]
  - Infarction [Unknown]

NARRATIVE: CASE EVENT DATE: 20140407
